FAERS Safety Report 6386068-4 (Version None)
Quarter: 2009Q4

REPORT INFORMATION
  Report Type: 
  Country: None (occurrence: None)
  Receive Date: 20091002
  Receipt Date: 20081030
  Transmission Date: 20100525
  Serious: No
  Sender: FDA-Public Use
  Company Number: US-ASTRAZENECA-2008UW24411

PATIENT
  Age: 81 Year
  Sex: Female
  Weight: 72.6 kg

DRUGS (4)
  1. ARIMIDEX [Suspect]
     Indication: BREAST CANCER
     Route: 048
     Dates: start: 20080401
  2. ATENOLOL [Concomitant]
  3. PROCARDIA [Concomitant]
  4. FOLIC ACID [Concomitant]

REACTIONS (7)
  - ARTHRALGIA [None]
  - FLUSHING [None]
  - JOINT STIFFNESS [None]
  - MUSCLE SPASMS [None]
  - NIGHT SWEATS [None]
  - PAIN [None]
  - PAIN IN EXTREMITY [None]
